FAERS Safety Report 25586909 (Version 1)
Quarter: 2025Q3

REPORT INFORMATION
  Report Type: Spontaneous
  Country: US (occurrence: US)
  Receive Date: 20250721
  Receipt Date: 20250721
  Transmission Date: 20251020
  Serious: No
  Sender: Phathom Pharmaceuticals
  Company Number: US-PHATHOM PHARMACEUTICALS INC.-2025PHT01157

PATIENT
  Age: 62 Year
  Sex: Female

DRUGS (16)
  1. VOQUEZNA [Suspect]
     Active Substance: VONOPRAZAN FUMARATE
     Indication: Gastrooesophageal reflux disease
     Dosage: 1 TABLETS, 1X/DAY
     Route: 048
     Dates: start: 20250331, end: 20250413
  2. VOQUEZNA [Suspect]
     Active Substance: VONOPRAZAN FUMARATE
     Indication: Gastrooesophageal reflux disease
     Dosage: 20 MG, 1X/DAY
     Route: 048
     Dates: start: 20250414, end: 20250508
  3. DULOXETINE [Concomitant]
     Active Substance: DULOXETINE
  4. BENZONATATE [Concomitant]
     Active Substance: BENZONATATE
  5. CANDESARTAN [Concomitant]
     Active Substance: CANDESARTAN
  6. METHOTREXATE [Concomitant]
     Active Substance: METHOTREXATE
  7. ALBUTEROL [Concomitant]
     Active Substance: ALBUTEROL
  8. BLACK COHOSH [Concomitant]
     Active Substance: BLACK COHOSH
  9. INSULIN NOS [Concomitant]
     Active Substance: INSULIN NOS
  10. ZYRTEC [Concomitant]
     Active Substance: CETIRIZINE HYDROCHLORIDE
  11. MAGNESIUM [Concomitant]
     Active Substance: MAGNESIUM
  12. VITAMIN D3 [Concomitant]
     Active Substance: CHOLECALCIFEROL
  13. VITAMINS NOS [Concomitant]
     Active Substance: VITAMINS
  14. PROBIOTICS NOS [Concomitant]
     Active Substance: PROBIOTICS NOS
  15. GEMTESA [Concomitant]
     Active Substance: VIBEGRON
  16. FOLIC ACID [Concomitant]
     Active Substance: FOLIC ACID

REACTIONS (5)
  - Oral pain [Unknown]
  - Hypoaesthesia oral [Recovered/Resolved]
  - Dyskinesia [Unknown]
  - Dry skin [Unknown]
  - Skin discolouration [Unknown]

NARRATIVE: CASE EVENT DATE: 20250101
